FAERS Safety Report 8973011 (Version 1)
Quarter: 2012Q4

REPORT INFORMATION
  Report Type: Report from Study
  Country: AR (occurrence: AR)
  Receive Date: 20121218
  Receipt Date: 20121218
  Transmission Date: 20130627
  Serious: Yes (Hospitalization)
  Sender: FDA-Public Use
  Company Number: AR-ROCHE-1140664

PATIENT
  Age: 62 Year
  Sex: Male
  Weight: 99 kg

DRUGS (8)
  1. VEMURAFENIB [Suspect]
     Indication: METASTATIC MALIGNANT MELANOMA
     Route: 048
     Dates: start: 20120601, end: 20120929
  2. VEMURAFENIB [Suspect]
     Route: 048
     Dates: start: 20121016
  3. ASPIRIN [Concomitant]
     Route: 065
     Dates: start: 200910
  4. OMEPRAZOLE [Concomitant]
     Route: 065
     Dates: start: 200910
  5. OMEPRAZOLE [Concomitant]
     Route: 065
     Dates: start: 20120929, end: 20121003
  6. CARVEDILOL [Concomitant]
     Route: 065
     Dates: start: 20120610
  7. AMLODIPINE [Concomitant]
     Route: 065
     Dates: start: 20120610
  8. METFORMIN [Concomitant]
     Route: 065
     Dates: start: 20120712

REACTIONS (1)
  - Cholelithiasis [Recovered/Resolved]
